FAERS Safety Report 24380621 (Version 1)
Quarter: 2024Q3

REPORT INFORMATION
  Report Type: Spontaneous
  Country: US (occurrence: US)
  Receive Date: 20240930
  Receipt Date: 20240930
  Transmission Date: 20241016
  Serious: No
  Sender: JOHNSON AND JOHNSON
  Company Number: US-JNJFOC-20240947834

PATIENT
  Age: 49 Year
  Sex: Male

DRUGS (1)
  1. IMODIUM A-D [Suspect]
     Active Substance: LOPERAMIDE HYDROCHLORIDE
     Indication: Accidental exposure to product
     Dosage: 5 TO 6 DOSES
     Route: 048

REACTIONS (2)
  - Accidental exposure to product [Unknown]
  - Overdose [Unknown]
